FAERS Safety Report 5071119-X (Version None)
Quarter: 2006Q3

REPORT INFORMATION
  Report Type: 
  Country: None (occurrence: None)
  Receive Date: 20060804
  Receipt Date: 20060220
  Transmission Date: 20061208
  Serious: No
  Sender: FDA-Public Use
  Company Number: US-GLAXOSMITHKLINE-A0594288A

PATIENT
  Age: 60 Year
  Sex: Female

DRUGS (2)
  1. NICORETTE [Suspect]
     Dates: start: 20060111
  2. NICORETTE [Suspect]

REACTIONS (2)
  - DRUG ADMINISTRATION ERROR [None]
  - MUSCLE TIGHTNESS [None]
